FAERS Safety Report 10262816 (Version 2)
Quarter: 2014Q2

REPORT INFORMATION
  Report Type: Report from Study
  Country: US (occurrence: US)
  Receive Date: 20140626
  Receipt Date: 20140626
  Transmission Date: 20141212
  Serious: Yes (Other)
  Sender: FDA-Public Use
  Company Number: US-MYLANLABS-2013S1017594

PATIENT
  Age: 59 Year
  Sex: Male

DRUGS (1)
  1. CLOZAPINE TABLETS [Suspect]
     Route: 048
     Dates: end: 20130724

REACTIONS (2)
  - Granulocytopenia [Not Recovered/Not Resolved]
  - Leukopenia [Not Recovered/Not Resolved]
